FAERS Safety Report 5941294-0 (Version None)
Quarter: 2008Q4

REPORT INFORMATION
  Report Type: 
  Country: None (occurrence: None)
  Receive Date: 20081103
  Receipt Date: 20081103
  Transmission Date: 20090506
  Serious: Yes (Hospitalization)
  Sender: FDA-Public Use
  Company Number: None

PATIENT
  Age: 59 Year
  Sex: Female
  Weight: 47.6277 kg

DRUGS (2)
  1. FOSAMAX [Suspect]
     Indication: OSTEOPOROSIS
     Dosage: 1 1 A WEEKMORNING
     Dates: start: 20020131, end: 20081031
  2. COUTAZONE [Concomitant]

REACTIONS (6)
  - ABASIA [None]
  - ARTHRALGIA [None]
  - BACK PAIN [None]
  - DRUG INTERACTION [None]
  - HYPERSOMNIA [None]
  - PAIN IN EXTREMITY [None]
